FAERS Safety Report 5012744-1 (Version None)
Quarter: 2006Q2

REPORT INFORMATION
  Report Type: 
  Country: None (occurrence: None)
  Receive Date: 20060530
  Receipt Date: 20051214
  Transmission Date: 20061013
  Serious: No
  Sender: FDA-Public Use
  Company Number: US-BRISTOL-MYERS SQUIBB COMPANY-13215801

PATIENT
  Age: 63 Year
  Sex: Male

DRUGS (8)
  1. ERBITUX [Suspect]
     Indication: RECTAL CANCER
     Dosage: INITIAL DOSE ON 30-SEP-2005; HELD X 2 WEEKS/RESUMED X 2 WEEKS.  LAST DOSE ADMINISTERED 23-DEC-2005.
     Route: 042
     Dates: start: 20051001, end: 20051001
  2. ALTACE [Concomitant]
  3. BENADRYL [Concomitant]
     Indication: PREMEDICATION
     Route: 042
     Dates: start: 20051001, end: 20051001
  4. GLYBURIDE [Concomitant]
  5. IRINOTECAN HCL [Concomitant]
     Route: 042
     Dates: start: 20051001, end: 20051001
  6. METFORMIN HYDROCHLORIDE [Concomitant]
  7. METOPROLOL TARTRATE [Concomitant]
  8. TYLENOL (GELTAB) [Concomitant]
     Indication: PREMEDICATION
     Route: 048
     Dates: start: 20051001, end: 20051001

REACTIONS (4)
  - GRANULOMA [None]
  - NAIL DISORDER [None]
  - SKIN DISCOLOURATION [None]
  - WHITE BLOOD CELL COUNT DECREASED [None]
